FAERS Safety Report 13819837 (Version 1)
Quarter: 2017Q3

REPORT INFORMATION
  Report Type: Spontaneous
  Country: US (occurrence: US)
  Receive Date: 20170801
  Receipt Date: 20170801
  Transmission Date: 20171127
  Serious: Yes (Disabling, Other)
  Sender: FDA-Public Use
  Company Number: None

PATIENT
  Age: 62 Year
  Sex: Male
  Weight: 94.5 kg

DRUGS (6)
  1. LATANOPROST OPHTHALMIC SOLUTION 0.005% [Suspect]
     Active Substance: LATANOPROST
     Indication: GLAUCOMA
     Dosage: ?          QUANTITY:1 DROP(S);?
     Route: 047
     Dates: start: 20170101
  2. METOPROLOL. [Suspect]
     Active Substance: METOPROLOL
  3. BENAZEPRIL [Concomitant]
     Active Substance: BENAZEPRIL HYDROCHLORIDE
  4. FAMOTIDINE. [Concomitant]
     Active Substance: FAMOTIDINE
  5. LOVASTATIN. [Concomitant]
     Active Substance: LOVASTATIN
  6. CENTRUM [Concomitant]
     Active Substance: VITAMINS

REACTIONS (3)
  - Device issue [None]
  - Intraocular pressure increased [None]
  - Product quality issue [None]

NARRATIVE: CASE EVENT DATE: 20170601
